FAERS Safety Report 5422202-8 (Version None)
Quarter: 2007Q3

REPORT INFORMATION
  Report Type: 
  Country: None (occurrence: None)
  Receive Date: 20070821
  Receipt Date: 20070821
  Transmission Date: 20080115
  Serious: Yes (Other)
  Sender: FDA-Public Use
  Company Number: None

PATIENT
  Age: 32 Year
  Sex: Male
  Weight: 82.5547 kg

DRUGS (5)
  1. OLANZAPINE [Suspect]
     Indication: SCHIZOPHRENIA
     Dosage: 10MG BID PO
     Route: 048
     Dates: start: 20061208, end: 20061211
  2. OLANZAPINE [Suspect]
     Indication: SCHIZOPHRENIA
     Dosage: 15MG BID PO
     Route: 048
     Dates: start: 20061211, end: 20070109
  3. DIPHENHYDRAMINE HCL [Concomitant]
  4. MIRTAZAPINE [Concomitant]
  5. ATORVASTATIN [Concomitant]

REACTIONS (1)
  - DIABETES MELLITUS [None]
